FAERS Safety Report 11615190 (Version 1)
Quarter: 2015Q4

REPORT INFORMATION
  Report Type: Spontaneous
  Country: US (occurrence: US)
  Receive Date: 20151009
  Receipt Date: 20151009
  Transmission Date: 20160304
  Serious: No
  Sender: FDA-Public Use
  Company Number: US-PFIZER INC-2015307738

PATIENT
  Sex: Male

DRUGS (1)
  1. LIPITOR [Suspect]
     Active Substance: ATORVASTATIN CALCIUM
     Dosage: UNK, 1X/DAY (AT NIGHT)
     Dates: start: 2015

REACTIONS (2)
  - Blood pressure increased [Unknown]
  - Chromaturia [Unknown]

NARRATIVE: CASE EVENT DATE: 2015
